FAERS Safety Report 6030986-3 (Version None)
Quarter: 2009Q1

REPORT INFORMATION
  Report Type: 
  Country: None (occurrence: None)
  Receive Date: 20090106
  Receipt Date: 20090106
  Transmission Date: 20090719
  Serious: Yes (Other)
  Sender: FDA-Public Use
  Company Number: None

PATIENT
  Age: 65 Year
  Sex: Female
  Weight: 94 kg

DRUGS (21)
  1. INVANZ [Suspect]
     Indication: ALPHA HAEMOLYTIC STREPTOCOCCAL INFECTION
     Dosage: 1 GRAM AT 0600 EVERY DAY IV
     Route: 042
     Dates: start: 20080820, end: 20080826
  2. INVANZ [Suspect]
     Indication: BRAIN ABSCESS
     Dosage: 1 GRAM AT 0600 EVERY DAY IV
     Route: 042
     Dates: start: 20080820, end: 20080826
  3. ACETAMINOPHEN [Concomitant]
  4. ACETAMINOPHEN AND HYDROCODONE BITARTRATE [Concomitant]
  5. MAALOX [Concomitant]
  6. BISACODYL [Concomitant]
  7. SUPPOSITORY [Concomitant]
  8. BUPROPION HCL [Concomitant]
  9. DESONIDE [Concomitant]
  10. ESTROGENS /METHYLTESTOSTERONE [Concomitant]
  11. HEPARIN [Concomitant]
  12. HYDROXYZINE [Concomitant]
  13. LANTUS [Concomitant]
  14. LISINOPRIL [Concomitant]
  15. MAGNESIUM HYDROXIDE TAB [Concomitant]
  16. METFORMIN [Concomitant]
  17. METHYLPREDNISOLONE [Concomitant]
  18. METHYLPREDNISOLONE SODIUM SUCCINATE [Concomitant]
  19. OMEPRAZOLE [Concomitant]
  20. PHENYTOIN [Concomitant]
  21. VENLAFAXINE HCL [Concomitant]

REACTIONS (1)
  - RASH [None]
